FAERS Safety Report 20430073 (Version 1)
Quarter: 2022Q1

REPORT INFORMATION
  Report Type: Report from Study
  Country: NL (occurrence: NL)
  Receive Date: 20220204
  Receipt Date: 20220204
  Transmission Date: 20220423
  Serious: Yes (Hospitalization, Other)
  Sender: FDA-Public Use
  Company Number: NL-SERVIER-S20001394

PATIENT

DRUGS (5)
  1. ONCASPAR [Suspect]
     Active Substance: PEGASPARGASE
     Indication: B precursor type acute leukaemia
     Dosage: 2100 IU, QD
     Route: 042
     Dates: start: 20200203
  2. BLINATUMOMAB [Suspect]
     Active Substance: BLINATUMOMAB
     Indication: B precursor type acute leukaemia
     Dosage: 28 MG, QD
     Dates: start: 20190624, end: 20190722
  3. PREDNISOLONE [Suspect]
     Active Substance: PREDNISOLONE
     Indication: B precursor type acute leukaemia
     Dosage: 82 MG, QD
     Route: 048
     Dates: start: 20200131, end: 20200213
  4. VINCRISTINE [Suspect]
     Active Substance: VINCRISTINE
     Indication: B precursor type acute leukaemia
     Dosage: 2 MG, QD
     Dates: start: 20200131, end: 20200214
  5. DAUNORUBICIN [Suspect]
     Active Substance: DAUNORUBICIN
     Indication: B precursor type acute leukaemia
     Dosage: 60 MG, QD
     Dates: start: 20200131, end: 20200214

REACTIONS (3)
  - Deep vein thrombosis [Recovered/Resolved]
  - Device related thrombosis [Recovered/Resolved]
  - Tracheobronchitis [Recovered/Resolved]

NARRATIVE: CASE EVENT DATE: 20200217
